FAERS Safety Report 9410263 (Version 3)
Quarter: 2013Q4

REPORT INFORMATION
  Report Type: Report from Study
  Country: NL (occurrence: NL)
  Receive Date: 20130719
  Receipt Date: 20131003
  Transmission Date: 20140711
  Serious: Yes (Other)
  Sender: FDA-Public Use
  Company Number: NL-BAXTER-2013BAX027314

PATIENT
  Sex: Female

DRUGS (3)
  1. GAMMAGARD S/D 10, POEDER VOOR INFUSIEVLOEISTOF [Suspect]
     Indication: IMMUNOGLOBULINS DECREASED
     Route: 042
  2. GAMMAGARD S/D 10, POEDER VOOR INFUSIEVLOEISTOF [Suspect]
     Route: 042
     Dates: start: 20130613
  3. GAMMAGARD S/D 10, POEDER VOOR INFUSIEVLOEISTOF [Suspect]
     Route: 042
     Dates: start: 20130710, end: 20130710

REACTIONS (1)
  - Drug effect incomplete [Unknown]
